FAERS Safety Report 8075792-3 (Version None)
Quarter: 2012Q1

REPORT INFORMATION
  Report Type: 
  Country: None (occurrence: None)
  Receive Date: 20120127
  Receipt Date: 20120116
  Transmission Date: 20120608
  Serious: Yes (Hospitalization, Other)
  Sender: FDA-Public Use
  Company Number: FR-ELI_LILLY_AND_COMPANY-FR201109003114

PATIENT
  Age: 53 Year
  Sex: Female

DRUGS (5)
  1. MIRTAZAPINE [Concomitant]
  2. TANGANIL [Concomitant]
  3. FORTEO [Suspect]
     Indication: OSTEOPOROSIS
     Dosage: 20 UG, QD
     Route: 058
     Dates: start: 20100604
  4. BETASERON [Concomitant]
  5. TERCIAN [Concomitant]

REACTIONS (4)
  - DIARRHOEA [None]
  - CERVIX CARCINOMA [None]
  - DIVERTICULITIS [None]
  - LACTOSE INTOLERANCE [None]
